FAERS Safety Report 16183279 (Version 1)
Quarter: 2019Q2

REPORT INFORMATION
  Report Type: Report from Study
  Country: IL (occurrence: IL)
  Receive Date: 20190411
  Receipt Date: 20190411
  Transmission Date: 20190711
  Serious: No
  Sender: FDA-Public Use
  Company Number: IL-ROCHE-2299731

PATIENT
  Age: 49 Year
  Sex: Female

DRUGS (1)
  1. OCREVUS [Suspect]
     Active Substance: OCRELIZUMAB
     Indication: MULTIPLE SCLEROSIS
     Route: 065
     Dates: start: 20181107

REACTIONS (4)
  - Upper respiratory tract infection [Recovering/Resolving]
  - Cough [Recovering/Resolving]
  - Pyrexia [Unknown]
  - Secretion discharge [Unknown]

NARRATIVE: CASE EVENT DATE: 20190401
